FAERS Safety Report 7570380-7 (Version None)
Quarter: 2011Q2

REPORT INFORMATION
  Report Type: 
  Country: None (occurrence: None)
  Receive Date: 20110624
  Receipt Date: 20110617
  Transmission Date: 20111010
  Serious: Yes (Hospitalization)
  Sender: FDA-Public Use
  Company Number: US-PFIZER INC-2009252771

PATIENT
  Sex: Male
  Weight: 86 kg

DRUGS (10)
  1. COREG [Concomitant]
  2. K-DUR [Concomitant]
  3. EPLERENONE [Suspect]
     Dosage: 50 MG, DAILY
     Route: 048
     Dates: start: 20081119, end: 20081231
  4. XANAX [Concomitant]
  5. LASIX [Concomitant]
  6. EPLERENONE [Suspect]
     Indication: CARDIAC FAILURE
     Dosage: 25 MG, DAILY
     Route: 048
     Dates: start: 20081101, end: 20081118
  7. ACETYLSALICYLIC ACID [Concomitant]
  8. LISINOPRIL [Concomitant]
  9. EPLERENONE [Suspect]
     Indication: CARDIOMYOPATHY
     Dosage: 25 MG, DAILY
     Route: 048
     Dates: start: 20081022, end: 20081031
  10. PRAVASTATIN [Concomitant]

REACTIONS (2)
  - HYPERKALAEMIA [None]
  - VENTRICULAR TACHYCARDIA [None]
